FAERS Safety Report 9832684 (Version 2)
Quarter: 2014Q1

REPORT INFORMATION
  Report Type: Report from Study
  Country: ES (occurrence: ES)
  Receive Date: 20140121
  Receipt Date: 20140127
  Transmission Date: 20141002
  Serious: Yes (Life-Threatening)
  Sender: FDA-Public Use
  Company Number: ES-TEVA-456780ISR

PATIENT
  Age: 79 Year
  Sex: Female
  Weight: 62.5 kg

DRUGS (11)
  1. MYOCET [Suspect]
     Indication: DIFFUSE LARGE B-CELL LYMPHOMA
     Dosage: 80 MILLIGRAM DAILY;
     Route: 042
     Dates: start: 20140102
  2. MYOCET [Suspect]
     Dosage: 80 MILLIGRAM DAILY;
     Route: 042
     Dates: start: 20131209, end: 20131230
  3. RITUXIMAB [Suspect]
     Indication: DIFFUSE LARGE B-CELL LYMPHOMA
     Dosage: 600 MILLIGRAM DAILY;
     Route: 042
     Dates: start: 20140102
  4. RITUXIMAB [Suspect]
     Dosage: 600 MILLIGRAM DAILY;
     Route: 042
     Dates: start: 20131209, end: 20131230
  5. PREDNISONE [Suspect]
     Indication: DIFFUSE LARGE B-CELL LYMPHOMA
     Dosage: 100 MILLIGRAM DAILY;
     Route: 048
     Dates: start: 20140102
  6. PREDNISONE [Suspect]
     Dosage: 100 MILLIGRAM DAILY;
     Route: 048
     Dates: start: 20131209, end: 20131230
  7. CYCLOPHOSPHAMIDE [Suspect]
     Indication: DIFFUSE LARGE B-CELL LYMPHOMA
     Dosage: 1200 MILLIGRAM DAILY;
     Route: 042
     Dates: start: 20140102
  8. CYCLOPHOSPHAMIDE [Suspect]
     Dosage: 1200 MILLIGRAM DAILY;
     Route: 042
     Dates: start: 20131209, end: 20131230
  9. VINCRISTINE [Suspect]
     Indication: DIFFUSE LARGE B-CELL LYMPHOMA
     Dosage: 2 MILLIGRAM DAILY;
     Route: 042
     Dates: start: 20140102
  10. VINCRISTINE [Suspect]
     Dosage: 2 MILLIGRAM DAILY;
     Route: 042
     Dates: start: 20131209, end: 20131230
  11. PRIMPERAN [Concomitant]
     Indication: VOMITING
     Dosage: 30 MILLIGRAM DAILY;
     Route: 042
     Dates: start: 20131216, end: 20140116

REACTIONS (1)
  - Gastric haemorrhage [Recovered/Resolved]
